FAERS Safety Report 6237234-X (Version None)
Quarter: 2009Q2

REPORT INFORMATION
  Report Type: 
  Country: None (occurrence: None)
  Receive Date: 20090619
  Receipt Date: 20090612
  Transmission Date: 20091009
  Serious: Yes (Other)
  Sender: FDA-Public Use
  Company Number: FR-BRISTOL-MYERS SQUIBB COMPANY-14671283

PATIENT

DRUGS (14)
  1. DIDANOSINE [Suspect]
     Indication: HIV INFECTION
  2. EFAVIRENZ [Suspect]
     Indication: HIV INFECTION
  3. STAVUDINE [Suspect]
     Indication: HIV INFECTION
  4. ATAZANAVIR SULFATE [Suspect]
     Indication: HIV INFECTION
  5. LAMIVUDINE [Suspect]
     Indication: HIV INFECTION
  6. ZIDOVUDINE [Suspect]
     Indication: HIV INFECTION
  7. TENOFOVIR [Suspect]
     Indication: HIV INFECTION
  8. NELFINAVIR [Suspect]
     Indication: HIV INFECTION
  9. NEVIRAPINE [Suspect]
     Indication: HIV INFECTION
  10. FOSAMPRENAVIR CALCIUM [Suspect]
     Indication: HIV INFECTION
  11. LOPINAVIR [Suspect]
     Indication: HIV INFECTION
  12. RITONAVIR [Suspect]
     Indication: HIV INFECTION
  13. EMTRICITABINE [Suspect]
     Indication: HIV INFECTION
  14. INDINIVIR SULFATE [Suspect]
     Indication: HIV INFECTION

REACTIONS (1)
  - NODULAR REGENERATIVE HYPERPLASIA [None]
